FAERS Safety Report 15884717 (Version 1)
Quarter: 2019Q1

REPORT INFORMATION
  Report Type: Spontaneous
  Country: FR (occurrence: FR)
  Receive Date: 20190129
  Receipt Date: 20190129
  Transmission Date: 20190417
  Serious: Yes (Other)
  Sender: FDA-Public Use
  Company Number: FR-JNJFOC-20190134225

PATIENT
  Age: 14 Year
  Sex: Male

DRUGS (1)
  1. HALDOL [Suspect]
     Active Substance: HALOPERIDOL
     Indication: BIPOLAR DISORDER
     Route: 064
     Dates: start: 20030724, end: 20040212

REACTIONS (1)
  - Learning disability [Not Recovered/Not Resolved]

NARRATIVE: CASE EVENT DATE: 20190104
